FAERS Safety Report 24400155 (Version 29)
Quarter: 2025Q3

REPORT INFORMATION
  Report Type: Spontaneous
  Country: GB (occurrence: GB)
  Receive Date: 20241005
  Receipt Date: 20250909
  Transmission Date: 20251020
  Serious: Yes (Hospitalization, Other)
  Sender: AMGEN
  Company Number: GB-SANDOZ-SDZ2023GB053012

PATIENT
  Age: 54 Year
  Sex: Female
  Weight: 71 kg

DRUGS (103)
  1. ADALIMUMAB [Suspect]
     Active Substance: ADALIMUMAB
     Indication: Product used for unknown indication
     Route: 058
  2. ADALIMUMAB [Suspect]
     Active Substance: ADALIMUMAB
     Route: 058
  3. ADALIMUMAB [Suspect]
     Active Substance: ADALIMUMAB
     Route: 058
  4. ADALIMUMAB [Suspect]
     Active Substance: ADALIMUMAB
     Route: 058
  5. ADALIMUMAB [Suspect]
     Active Substance: ADALIMUMAB
     Route: 058
  6. ADALIMUMAB [Suspect]
     Active Substance: ADALIMUMAB
     Route: 058
  7. ADALIMUMAB [Suspect]
     Active Substance: ADALIMUMAB
     Route: 058
  8. ADALIMUMAB [Suspect]
     Active Substance: ADALIMUMAB
     Route: 058
  9. ADALIMUMAB [Suspect]
     Active Substance: ADALIMUMAB
     Route: 058
  10. ADALIMUMAB [Suspect]
     Active Substance: ADALIMUMAB
     Route: 058
  11. ADALIMUMAB [Suspect]
     Active Substance: ADALIMUMAB
     Route: 058
  12. ADALIMUMAB [Suspect]
     Active Substance: ADALIMUMAB
     Route: 058
  13. ADALIMUMAB [Suspect]
     Active Substance: ADALIMUMAB
     Route: 058
  14. ADALIMUMAB [Suspect]
     Active Substance: ADALIMUMAB
     Route: 058
  15. ADALIMUMAB [Suspect]
     Active Substance: ADALIMUMAB
     Route: 058
  16. ADALIMUMAB [Suspect]
     Active Substance: ADALIMUMAB
     Route: 058
  17. ADALIMUMAB [Suspect]
     Active Substance: ADALIMUMAB
     Route: 058
  18. ADALIMUMAB [Suspect]
     Active Substance: ADALIMUMAB
     Route: 058
  19. ADALIMUMAB [Suspect]
     Active Substance: ADALIMUMAB
     Route: 058
  20. ADALIMUMAB [Suspect]
     Active Substance: ADALIMUMAB
     Route: 058
  21. ADALIMUMAB [Suspect]
     Active Substance: ADALIMUMAB
     Route: 058
  22. ADALIMUMAB [Suspect]
     Active Substance: ADALIMUMAB
     Route: 058
  23. ADALIMUMAB [Suspect]
     Active Substance: ADALIMUMAB
     Route: 058
  24. ADALIMUMAB [Suspect]
     Active Substance: ADALIMUMAB
     Route: 058
  25. ADALIMUMAB [Suspect]
     Active Substance: ADALIMUMAB
     Route: 058
  26. ADALIMUMAB [Suspect]
     Active Substance: ADALIMUMAB
     Route: 058
  27. ADALIMUMAB [Suspect]
     Active Substance: ADALIMUMAB
     Route: 058
  28. ADALIMUMAB [Suspect]
     Active Substance: ADALIMUMAB
     Route: 058
  29. ADALIMUMAB [Suspect]
     Active Substance: ADALIMUMAB
     Route: 058
  30. ADALIMUMAB [Suspect]
     Active Substance: ADALIMUMAB
     Route: 058
  31. ADALIMUMAB [Suspect]
     Active Substance: ADALIMUMAB
     Route: 058
  32. ADALIMUMAB [Suspect]
     Active Substance: ADALIMUMAB
     Route: 058
  33. ADALIMUMAB [Suspect]
     Active Substance: ADALIMUMAB
     Route: 058
  34. ADALIMUMAB [Suspect]
     Active Substance: ADALIMUMAB
     Route: 058
  35. ADALIMUMAB [Suspect]
     Active Substance: ADALIMUMAB
     Route: 058
  36. ADALIMUMAB [Suspect]
     Active Substance: ADALIMUMAB
     Route: 058
  37. ADALIMUMAB [Suspect]
     Active Substance: ADALIMUMAB
     Route: 058
  38. ADALIMUMAB [Suspect]
     Active Substance: ADALIMUMAB
     Route: 058
  39. ADALIMUMAB [Suspect]
     Active Substance: ADALIMUMAB
     Route: 058
  40. ADALIMUMAB [Suspect]
     Active Substance: ADALIMUMAB
     Route: 058
  41. ADALIMUMAB [Suspect]
     Active Substance: ADALIMUMAB
     Route: 058
  42. ADALIMUMAB [Suspect]
     Active Substance: ADALIMUMAB
     Route: 058
  43. ADALIMUMAB [Suspect]
     Active Substance: ADALIMUMAB
     Route: 058
  44. ADALIMUMAB [Suspect]
     Active Substance: ADALIMUMAB
     Route: 058
  45. ADALIMUMAB [Suspect]
     Active Substance: ADALIMUMAB
     Route: 058
  46. ADALIMUMAB [Suspect]
     Active Substance: ADALIMUMAB
     Route: 058
  47. ADALIMUMAB [Suspect]
     Active Substance: ADALIMUMAB
     Route: 058
  48. ADALIMUMAB [Suspect]
     Active Substance: ADALIMUMAB
     Route: 058
  49. ADALIMUMAB [Suspect]
     Active Substance: ADALIMUMAB
     Route: 058
  50. ADALIMUMAB [Suspect]
     Active Substance: ADALIMUMAB
     Route: 058
  51. LETROZOLE [Suspect]
     Active Substance: LETROZOLE
     Indication: Breast cancer female
     Dosage: 2.5 MG, QD (2.5 MG, DAILY)/ (DOSAGE1: UNIT=NOT AVAILABLE) / (CUMULATIVE DOSE TO FIRST REACTION: 98 M
     Route: 048
     Dates: start: 20240221, end: 20240430
  52. LETROZOLE [Suspect]
     Active Substance: LETROZOLE
     Indication: Breast cancer
     Dosage: 2.5 MILLIGRAM, QD (1X/DAY) (ADDITIONAL INFORMATION: DOSAGE1: UNIT=NOT AVAILABLE)
     Route: 048
     Dates: start: 20240221, end: 20240430
  53. LETROZOLE [Suspect]
     Active Substance: LETROZOLE
     Dosage: 2.5 MILLIGRAM, QD
     Route: 048
     Dates: start: 20240221, end: 20240430
  54. LETROZOLE [Suspect]
     Active Substance: LETROZOLE
     Dosage: 2.5 MILLIGRAM, QD
     Route: 048
     Dates: start: 20240221, end: 20240430
  55. LETROZOLE [Suspect]
     Active Substance: LETROZOLE
     Dosage: 2.5 MILLIGRAM, QD (1X/DAY) (ADDITIONAL INFORMATION: DOSAGE1: UNIT=NOT AVAILABLE)
     Route: 048
     Dates: start: 20240221, end: 20240430
  56. LETROZOLE [Suspect]
     Active Substance: LETROZOLE
     Dosage: 2.5 MG, QD (2.5 MG, DAILY)/ (DOSAGE1: UNIT=NOT AVAILABLE) / (CUMULATIVE DOSE TO FIRST REACTION: 98 M
     Route: 048
     Dates: start: 20240221, end: 20240430
  57. LETROZOLE [Suspect]
     Active Substance: LETROZOLE
     Dosage: 2.5 MG, QD (2.5 MG, DAILY)/ (DOSAGE1: UNIT=NOT AVAILABLE) / (CUMULATIVE DOSE TO FIRST REACTION: 98 M
     Route: 048
     Dates: start: 20240221, end: 20240430
  58. LETROZOLE [Suspect]
     Active Substance: LETROZOLE
     Dosage: 2.5 MG, QD (2.5 MG, DAILY)/ (DOSAGE1: UNIT=NOT AVAILABLE) / (CUMULATIVE DOSE TO FIRST REACTION: 98 M
     Route: 048
     Dates: start: 20240221, end: 20240430
  59. LETROZOLE [Suspect]
     Active Substance: LETROZOLE
     Dosage: 2.5 MG, QD (2.5 MG, DAILY)/ (DOSAGE1: UNIT=NOT AVAILABLE) / (CUMULATIVE DOSE TO FIRST REACTION: 98 M
     Route: 048
     Dates: start: 20240221, end: 20240430
  60. PALBOCICLIB [Suspect]
     Active Substance: PALBOCICLIB
     Indication: Breast cancer female
     Dosage: 125 MG, CYCLIC (DAILY FROM DAY 1 TO DAY 21 EVERY 28-DAY CYCLE)/ (DOSAGE1: UNIT=NOT AVAILABLE), FILM-
     Route: 048
     Dates: start: 20240221, end: 20240423
  61. PALBOCICLIB [Suspect]
     Active Substance: PALBOCICLIB
     Route: 048
     Dates: start: 20240221, end: 20240423
  62. PALBOCICLIB [Suspect]
     Active Substance: PALBOCICLIB
     Route: 048
     Dates: start: 20240221, end: 20240423
  63. PALBOCICLIB [Suspect]
     Active Substance: PALBOCICLIB
     Route: 048
     Dates: start: 20240221, end: 20240423
  64. PALBOCICLIB [Suspect]
     Active Substance: PALBOCICLIB
     Route: 048
     Dates: start: 20240221, end: 20240423
  65. PALBOCICLIB [Suspect]
     Active Substance: PALBOCICLIB
     Route: 048
     Dates: start: 20240221, end: 20240423
  66. SECUKINUMAB [Suspect]
     Active Substance: SECUKINUMAB
     Indication: Product used for unknown indication
     Route: 058
  67. SECUKINUMAB [Suspect]
     Active Substance: SECUKINUMAB
     Route: 058
  68. SECUKINUMAB [Suspect]
     Active Substance: SECUKINUMAB
     Route: 065
  69. SECUKINUMAB [Suspect]
     Active Substance: SECUKINUMAB
     Route: 058
  70. SECUKINUMAB [Suspect]
     Active Substance: SECUKINUMAB
     Route: 058
  71. SECUKINUMAB [Suspect]
     Active Substance: SECUKINUMAB
     Route: 058
  72. SECUKINUMAB [Suspect]
     Active Substance: SECUKINUMAB
     Route: 058
  73. SECUKINUMAB [Suspect]
     Active Substance: SECUKINUMAB
     Route: 058
  74. SECUKINUMAB [Suspect]
     Active Substance: SECUKINUMAB
     Route: 058
  75. SECUKINUMAB [Suspect]
     Active Substance: SECUKINUMAB
     Route: 058
  76. SECUKINUMAB [Suspect]
     Active Substance: SECUKINUMAB
     Route: 058
  77. SECUKINUMAB [Suspect]
     Active Substance: SECUKINUMAB
     Route: 058
  78. SECUKINUMAB [Suspect]
     Active Substance: SECUKINUMAB
     Route: 058
  79. SECUKINUMAB [Suspect]
     Active Substance: SECUKINUMAB
     Route: 058
  80. SECUKINUMAB [Suspect]
     Active Substance: SECUKINUMAB
     Route: 058
  81. SECUKINUMAB [Suspect]
     Active Substance: SECUKINUMAB
     Route: 058
  82. SECUKINUMAB [Suspect]
     Active Substance: SECUKINUMAB
     Route: 058
  83. SECUKINUMAB [Suspect]
     Active Substance: SECUKINUMAB
     Route: 058
  84. SECUKINUMAB [Suspect]
     Active Substance: SECUKINUMAB
     Route: 058
  85. SECUKINUMAB [Suspect]
     Active Substance: SECUKINUMAB
     Route: 058
  86. SECUKINUMAB [Suspect]
     Active Substance: SECUKINUMAB
     Route: 058
  87. SECUKINUMAB [Suspect]
     Active Substance: SECUKINUMAB
     Route: 058
  88. SECUKINUMAB [Suspect]
     Active Substance: SECUKINUMAB
     Route: 058
  89. SECUKINUMAB [Suspect]
     Active Substance: SECUKINUMAB
     Route: 058
  90. SECUKINUMAB [Suspect]
     Active Substance: SECUKINUMAB
     Route: 058
  91. SECUKINUMAB [Suspect]
     Active Substance: SECUKINUMAB
     Route: 058
  92. SECUKINUMAB [Suspect]
     Active Substance: SECUKINUMAB
     Route: 058
  93. SECUKINUMAB [Suspect]
     Active Substance: SECUKINUMAB
     Route: 058
  94. SECUKINUMAB [Suspect]
     Active Substance: SECUKINUMAB
     Route: 058
  95. SECUKINUMAB [Suspect]
     Active Substance: SECUKINUMAB
     Route: 058
  96. SECUKINUMAB [Suspect]
     Active Substance: SECUKINUMAB
     Route: 058
  97. SECUKINUMAB [Suspect]
     Active Substance: SECUKINUMAB
     Route: 058
  98. SECUKINUMAB [Suspect]
     Active Substance: SECUKINUMAB
     Route: 058
  99. SECUKINUMAB [Suspect]
     Active Substance: SECUKINUMAB
     Route: 058
  100. SECUKINUMAB [Suspect]
     Active Substance: SECUKINUMAB
     Route: 058
  101. EDOXABAN TOSYLATE [Concomitant]
     Active Substance: EDOXABAN TOSYLATE
     Indication: Product used for unknown indication
     Route: 065
     Dates: start: 202401
  102. EDOXABAN TOSYLATE [Concomitant]
     Active Substance: EDOXABAN TOSYLATE
     Route: 048
     Dates: start: 202401
  103. EDOXABAN TOSYLATE [Concomitant]
     Active Substance: EDOXABAN TOSYLATE
     Route: 048
     Dates: start: 202401, end: 202401

REACTIONS (5)
  - Anaemia [Recovered/Resolved]
  - White blood cell count decreased [Unknown]
  - Neoplasm progression [Unknown]
  - Metastases to bone [Unknown]
  - Systemic lupus erythematosus [Unknown]

NARRATIVE: CASE EVENT DATE: 20240330
